FAERS Safety Report 9227477 (Version 1)
Quarter: 2013Q2

REPORT INFORMATION
  Report Type: Spontaneous
  Country: US (occurrence: US)
  Receive Date: 20130412
  Receipt Date: 20130412
  Transmission Date: 20140414
  Serious: Yes (Other)
  Sender: FDA-Public Use
  Company Number: US-PFIZER INC-2013113645

PATIENT
  Age: 57 Year
  Sex: 0

DRUGS (1)
  1. DILANTIN [Suspect]
     Dosage: 100 MG, 3 TABS Q BEDTIME

REACTIONS (2)
  - Cerebrovascular accident [Unknown]
  - Myocardial infarction [Unknown]
